FAERS Safety Report 14168383 (Version 6)
Quarter: 2018Q1

REPORT INFORMATION
  Report Type: Spontaneous
  Country: JP (occurrence: JP)
  Receive Date: 20171108
  Receipt Date: 20180313
  Transmission Date: 20180508
  Serious: Yes (Life-Threatening, Hospitalization)
  Sender: FDA-Public Use
  Company Number: JP-ABBVIE-17K-087-2155628-00

PATIENT
  Age: 66 Year
  Sex: Male

DRUGS (2)
  1. HUMIRA [Suspect]
     Active Substance: ADALIMUMAB
     Indication: RHEUMATOID ARTHRITIS
     Route: 058
     Dates: start: 201409, end: 201708
  2. MTX [Concomitant]
     Active Substance: METHOTREXATE SODIUM
     Indication: RHEUMATOID ARTHRITIS
     Route: 048
     Dates: start: 2006, end: 201708

REACTIONS (4)
  - Organising pneumonia [Recovering/Resolving]
  - Pneumonia legionella [Recovering/Resolving]
  - Pseudomonas infection [Unknown]
  - Lupus-like syndrome [Not Recovered/Not Resolved]

NARRATIVE: CASE EVENT DATE: 201708
